FAERS Safety Report 7423675-1 (Version None)
Quarter: 2011Q2

REPORT INFORMATION
  Report Type: 
  Country: None (occurrence: None)
  Receive Date: 20110413
  Receipt Date: 20110413
  Transmission Date: 20111010
  Serious: Yes (Hospitalization)
  Sender: FDA-Public Use
  Company Number: None

PATIENT
  Age: 56 Year
  Sex: Male
  Weight: 186.8 kg

DRUGS (1)
  1. TRAZODONE HCL [Suspect]
     Dosage: 50 MG EVERY DAY PO
     Route: 048
     Dates: start: 20100926, end: 20101202

REACTIONS (5)
  - MENTAL STATUS CHANGES [None]
  - OVERDOSE [None]
  - MOOD ALTERED [None]
  - CONFUSIONAL STATE [None]
  - SEDATION [None]
